FAERS Safety Report 8758940 (Version 1)
Quarter: 2012Q4

REPORT INFORMATION
  Report Type: 
  Country: PL (occurrence: PL)
  Receive Date: 20120829
  Receipt Date: 20120829
  Transmission Date: 20130627
  Serious: Yes (Other)
  Sender: FDA-Public Use
  Company Number: PL-JNJFOC-20120810990

PATIENT

DRUGS (1)
  1. CLADRIBINE [Suspect]
     Indication: MYCOSIS FUNGOIDES
     Route: 042

REACTIONS (2)
  - Sepsis [Unknown]
  - Agranulocytosis [Unknown]
